FAERS Safety Report 15375840 (Version 5)
Quarter: 2019Q3

REPORT INFORMATION
  Report Type: Report from Study
  Country: US (occurrence: US)
  Receive Date: 20180912
  Receipt Date: 20190920
  Transmission Date: 20191004
  Serious: Yes (Hospitalization)
  Sender: FDA-Public Use
  Company Number: US-ACTELION-A-US2016-132991

PATIENT
  Age: 77 Year
  Sex: Male
  Weight: 84.35 kg

DRUGS (9)
  1. TYVASO [Suspect]
     Active Substance: TREPROSTINIL
     Indication: PRODUCT USED FOR UNKNOWN INDICATION
     Dosage: UNK
     Route: 065
  2. OPSUMIT [Suspect]
     Active Substance: MACITENTAN
     Dosage: 10 MG, QD
     Route: 048
  3. REMODULIN [Suspect]
     Active Substance: TREPROSTINIL
     Indication: PRODUCT USED FOR UNKNOWN INDICATION
     Dosage: 20 NG/KG, PER MIN
     Route: 042
  4. REMODULIN [Suspect]
     Active Substance: TREPROSTINIL
     Dosage: 100 NG/KG, PER MIN
     Route: 042
  5. OPSUMIT [Suspect]
     Active Substance: MACITENTAN
     Indication: PULMONARY ARTERIAL HYPERTENSION
     Dosage: 10 MG, QD
     Route: 048
     Dates: start: 20160215
  6. METOLAZONE. [Suspect]
     Active Substance: METOLAZONE
     Indication: PRODUCT USED FOR UNKNOWN INDICATION
     Dosage: 5 MG, QD
     Route: 048
  7. ORENITRAM [Concomitant]
     Active Substance: TREPROSTINIL
  8. DILTIAZEM. [Concomitant]
     Active Substance: DILTIAZEM
  9. SILDENAFIL CITRATE. [Concomitant]
     Active Substance: SILDENAFIL CITRATE

REACTIONS (34)
  - Syncope [Unknown]
  - Dyspnoea exertional [Unknown]
  - Right ventricular systolic pressure increased [Unknown]
  - Fluid retention [Unknown]
  - Acute kidney injury [Recovering/Resolving]
  - Flushing [Unknown]
  - Pruritus [Unknown]
  - Hypoxia [Unknown]
  - Paracentesis [Unknown]
  - Urinary tract infection [Unknown]
  - Diarrhoea [Unknown]
  - Device dislocation [Unknown]
  - Chronic kidney disease [Recovering/Resolving]
  - Muscle tightness [Unknown]
  - Erythema [Unknown]
  - Respiratory failure [Unknown]
  - Throat tightness [Unknown]
  - Oxygen saturation decreased [Unknown]
  - Nasal congestion [Unknown]
  - Dyspnoea [Unknown]
  - Oedema peripheral [Unknown]
  - Condition aggravated [Unknown]
  - Thrombosis [Unknown]
  - Pneumonia [Unknown]
  - Productive cough [Unknown]
  - Catheter management [Unknown]
  - Pulmonary hypertension [Unknown]
  - Ascites [Unknown]
  - Dehydration [Recovering/Resolving]
  - Oropharyngeal pain [Unknown]
  - Sinusitis [Recovered/Resolved]
  - Right ventricular failure [Unknown]
  - Throat irritation [Unknown]
  - Tension headache [Unknown]

NARRATIVE: CASE EVENT DATE: 20180629
